FAERS Safety Report 18443335 (Version 3)
Quarter: 2021Q3

REPORT INFORMATION
  Report Type: Spontaneous
  Country: US (occurrence: US)
  Receive Date: 20201029
  Receipt Date: 20210819
  Transmission Date: 20211014
  Serious: Yes (Disabling, Other)
  Sender: FDA-Public Use
  Company Number: US-PURDUE-USA-2020-0172403

PATIENT
  Sex: Male

DRUGS (2)
  1. NORCO [Suspect]
     Active Substance: ACETAMINOPHEN\HYDROCODONE BITARTRATE
     Indication: PAIN
     Dosage: 5?325 MG, Q4? 6H
     Route: 065
  2. HYDROCODONE BITARTRATE AND ACETAMINOPHEN [Suspect]
     Active Substance: ACETAMINOPHEN\HYDROCODONE BITARTRATE
     Indication: PRODUCT USED FOR UNKNOWN INDICATION
     Dosage: UNKNOWN
     Route: 048

REACTIONS (24)
  - Mental disorder [Unknown]
  - Haematemesis [Unknown]
  - Abnormal faeces [Unknown]
  - Weight decreased [Unknown]
  - Malaise [Unknown]
  - Tobacco abuse [Unknown]
  - Melaena [Unknown]
  - Anxiety [Unknown]
  - Rectal haemorrhage [Unknown]
  - Depression [Unknown]
  - Overdose [Unknown]
  - Osteoarthritis [Unknown]
  - Haematochezia [Unknown]
  - Abdominal pain [Unknown]
  - Emotional distress [Unknown]
  - Irritability [Unknown]
  - Stress [Unknown]
  - Bipolar disorder [Unknown]
  - Unevaluable event [Unknown]
  - Drug dependence [Unknown]
  - Road traffic accident [Unknown]
  - Fatigue [Unknown]
  - Pain [Unknown]
  - Arthralgia [Unknown]
